FAERS Safety Report 7772354-X (Version None)
Quarter: 2011Q3

REPORT INFORMATION
  Report Type: 
  Country: None (occurrence: None)
  Receive Date: 20110922
  Receipt Date: 20100517
  Transmission Date: 20111222
  Serious: No
  Sender: FDA-Public Use
  Company Number: US-ASTRAZENECA-2010SE45860

PATIENT
  Age: 34 Year
  Sex: Female

DRUGS (5)
  1. ADVAIR DISKUS 100/50 [Concomitant]
     Dates: start: 20060101
  2. LITCO3 [Concomitant]
     Dates: start: 20050629
  3. ENBREL [Concomitant]
     Dates: start: 20060101
  4. SEROQUEL [Suspect]
     Route: 048
     Dates: start: 20050629
  5. ALBUTEROL [Concomitant]
     Dates: start: 20060101

REACTIONS (3)
  - RHEUMATOID ARTHRITIS [None]
  - ASTHMA [None]
  - FALL [None]
